FAERS Safety Report 14644625 (Version 2)
Quarter: 2018Q1

REPORT INFORMATION
  Report Type: Spontaneous
  Country: FR (occurrence: FR)
  Receive Date: 20180315
  Receipt Date: 20180323
  Transmission Date: 20180509
  Serious: Yes (Hospitalization, Disabling, Congenital Anomaly, Other)
  Sender: FDA-Public Use
  Company Number: FR-ABBVIE-18P-056-2284831-00

PATIENT
  Sex: Male

DRUGS (3)
  1. DEPAKINE CHRONO [Suspect]
     Active Substance: VALPROATE SODIUM
     Indication: MATERNAL EXPOSURE TIMING UNSPECIFIED
     Route: 064
  2. LAMICTAL [Concomitant]
     Active Substance: LAMOTRIGINE
     Indication: PRODUCT USED FOR UNKNOWN INDICATION
  3. ZOLMITRIPTAN. [Concomitant]
     Active Substance: ZOLMITRIPTAN
     Indication: PRODUCT USED FOR UNKNOWN INDICATION

REACTIONS (19)
  - Self esteem decreased [Unknown]
  - Hypermetropia [Unknown]
  - Musculoskeletal disorder [Unknown]
  - Attention deficit/hyperactivity disorder [Unknown]
  - Clinodactyly [Unknown]
  - Brachydactyly [Unknown]
  - Dysmorphism [Unknown]
  - Enuresis [Unknown]
  - Syndactyly [Unknown]
  - Ear infection [Unknown]
  - Foot deformity [Unknown]
  - Anxiety [Unknown]
  - Language disorder [Unknown]
  - Nasopharyngitis [Unknown]
  - Dyspnoea [Unknown]
  - Limb malformation [Unknown]
  - Scoliosis [Unknown]
  - Learning disorder [Unknown]
  - Foetal exposure during pregnancy [Unknown]
